FAERS Safety Report 21151773 (Version 1)
Quarter: 2022Q3

REPORT INFORMATION
  Report Type: Spontaneous
  Country: US (occurrence: US)
  Receive Date: 20220730
  Receipt Date: 20220730
  Transmission Date: 20221026
  Serious: No
  Sender: FDA-Public Use
  Company Number: US-TEVA-2022-US-2057456

PATIENT

DRUGS (1)
  1. LORAZEPAM [Suspect]
     Active Substance: LORAZEPAM
     Indication: Product used for unknown indication
     Dosage: 1 MILLIGRAM
     Route: 065

REACTIONS (7)
  - Nausea [Unknown]
  - Palpitations [Unknown]
  - Unevaluable event [Unknown]
  - Abdominal discomfort [Unknown]
  - Sleep disorder [Unknown]
  - Middle insomnia [Unknown]
  - Constipation [Unknown]
